FAERS Safety Report 8779068 (Version 1)
Quarter: 2012Q4

REPORT INFORMATION
  Report Type: 
  Country: US (occurrence: US)
  Receive Date: 20120912
  Receipt Date: 20120912
  Transmission Date: 20130627
  Serious: No
  Sender: FDA-Public Use
  Company Number: US-BAYER-2012-094566

PATIENT
  Age: 84 Year
  Sex: Female
  Weight: 77.1 kg

DRUGS (5)
  1. ALEVE CAPLET/TABLET,MIDOL EXTENDED RELIEF CAPLET [Suspect]
     Indication: HEADACHE
     Dosage: 2 DF, BID
     Route: 048
     Dates: start: 2011
  2. TRICOR [Concomitant]
  3. ZOCOR [Concomitant]
  4. PROZAC [Concomitant]
  5. INCONTINENCE DRUG [Concomitant]

REACTIONS (1)
  - No adverse event [None]
